FAERS Safety Report 7497601-3 (Version None)
Quarter: 2011Q2

REPORT INFORMATION
  Report Type: 
  Country: None (occurrence: None)
  Receive Date: 20110523
  Receipt Date: 20110510
  Transmission Date: 20111010
  Serious: Yes (Other)
  Sender: FDA-Public Use
  Company Number: GR-JNJFOC-20100608114

PATIENT
  Age: 26 Year
  Sex: Female

DRUGS (2)
  1. REMICADE [Suspect]
     Route: 042
     Dates: end: 20091223
  2. REMICADE [Suspect]
     Indication: COLITIS ULCERATIVE
     Dosage: 'HALF DOSE'
     Route: 042
     Dates: start: 20080401

REACTIONS (3)
  - DERMATITIS [None]
  - PSORIASIS [None]
  - SEBORRHOEA [None]
